FAERS Safety Report 9164690 (Version 1)
Quarter: 2013Q1

REPORT INFORMATION
  Report Type: Spontaneous
  Country: US (occurrence: US)
  Receive Date: 20130315
  Receipt Date: 20130315
  Transmission Date: 20140127
  Serious: No
  Sender: FDA-Public Use
  Company Number: US-009507513-1303USA007195

PATIENT
  Sex: Female
  Weight: 114.74 kg

DRUGS (2)
  1. IMPLANON [Suspect]
     Indication: CONTRACEPTION
     Dosage: 1 ROD FOR 3 YEAR USE, IN LEFT ARM
     Dates: start: 200909
  2. NORTREL (LEVONORGESTREL) [Concomitant]

REACTIONS (2)
  - Weight increased [Unknown]
  - Medical device complication [Unknown]
